FAERS Safety Report 5903733-0 (Version None)
Quarter: 2008Q3

REPORT INFORMATION
  Report Type: 
  Country: None (occurrence: None)
  Receive Date: 20080930
  Receipt Date: 20080924
  Transmission Date: 20090109
  Serious: Yes (Other)
  Sender: FDA-Public Use
  Company Number: PL-B.I. PHARMACEUTICALS,INC./RIDGEFIELD-2008-AP-00221AP

PATIENT
  Sex: Female
  Weight: 67 kg

DRUGS (6)
  1. SPIRIVA [Suspect]
     Indication: CHRONIC OBSTRUCTIVE PULMONARY DISEASE
     Dosage: 18MCG
     Route: 055
     Dates: start: 20080824, end: 20080826
  2. ZAFIRON [Concomitant]
     Dosage: 2X1
     Route: 055
  3. MIFLONIDE [Concomitant]
     Dosage: 2X1
     Route: 055
  4. ATENOLOL [Concomitant]
     Dosage: 2X1
     Route: 048
  5. POLPRIL [Concomitant]
     Dosage: 1X1
     Route: 048
  6. ACENOCUMAROL [Concomitant]

REACTIONS (3)
  - DIZZINESS [None]
  - DYSPNOEA [None]
  - RESPIRATORY TRACT IRRITATION [None]
